FAERS Safety Report 17525899 (Version 2)
Quarter: 2020Q1

REPORT INFORMATION
  Report Type: Spontaneous
  Country: US (occurrence: US)
  Receive Date: 20200310
  Receipt Date: 20200313
  Transmission Date: 20200409
  Serious: Yes (Other)
  Sender: FDA-Public Use
  Company Number: US-TEVA-2020-US-1195457

PATIENT
  Age: 65 Year
  Sex: Male
  Weight: 136 kg

DRUGS (2)
  1. BUPRENORPHINE. [Suspect]
     Active Substance: BUPRENORPHINE
     Indication: ANALGESIC THERAPY
     Dosage: 15MCG/HR
     Route: 062
     Dates: start: 20200221, end: 20200303
  2. BUPRENORPHINE. [Suspect]
     Active Substance: BUPRENORPHINE
     Indication: PAIN

REACTIONS (4)
  - Drug ineffective [Unknown]
  - Back pain [Unknown]
  - Neuropathy peripheral [Unknown]
  - Dysuria [Not Recovered/Not Resolved]
